FAERS Safety Report 18734331 (Version 1)
Quarter: 2021Q1

REPORT INFORMATION
  Report Type: Spontaneous
  Country: FR (occurrence: FR)
  Receive Date: 20210113
  Receipt Date: 20210113
  Transmission Date: 20210419
  Serious: Yes (Other)
  Sender: FDA-Public Use
  Company Number: FR-ACCORD-214294

PATIENT
  Age: 66 Year
  Sex: Male

DRUGS (14)
  1. ALDACTONE [Concomitant]
     Active Substance: SPIRONOLACTONE
     Dosage: 25 MG
  2. LEXOMIL [Concomitant]
     Active Substance: BROMAZEPAM
  3. OGASTORO [Concomitant]
     Active Substance: LANSOPRAZOLE
     Dosage: 30 MG
  4. CRESTOR [Concomitant]
     Active Substance: ROSUVASTATIN CALCIUM
     Dosage: 20 MG
  5. ELIQUIS [Concomitant]
     Active Substance: APIXABAN
     Dosage: 5 MG
  6. FUROSEMIDE. [Concomitant]
     Active Substance: FUROSEMIDE
  7. XATRAL LP [Concomitant]
     Active Substance: ALFUZOSIN
     Dosage: 10 MG
  8. SPIRONOLACTONE. [Suspect]
     Active Substance: SPIRONOLACTONE
     Indication: ACUTE CORONARY SYNDROME
     Route: 048
     Dates: start: 2006, end: 202011
  9. BISOCE [Concomitant]
     Active Substance: BISOPROLOL
     Dosage: 1.25 MG
  10. ENTRESTO [Concomitant]
     Active Substance: SACUBITRIL\VALSARTAN
     Dosage: 24 MG / 26 MG
  11. AMIODARONE [Suspect]
     Active Substance: AMIODARONE
     Indication: SUPRAVENTRICULAR TACHYCARDIA
     Route: 048
     Dates: start: 20200501, end: 202011
  12. XENETIX [Suspect]
     Active Substance: IOBITRIDOL
     Indication: COMPUTERISED TOMOGRAM
     Dosage: 300 MG IODINE / ML
     Route: 042
     Dates: start: 20201030, end: 20201030
  13. PLAVIX [Concomitant]
     Active Substance: CLOPIDOGREL BISULFATE
     Dosage: 75 MG
  14. RIVOTRIL [Concomitant]
     Active Substance: CLONAZEPAM

REACTIONS (2)
  - Pruritus [Recovered/Resolved]
  - Hyperthyroidism [Recovering/Resolving]

NARRATIVE: CASE EVENT DATE: 20201030
